FAERS Safety Report 20684705 (Version 2)
Quarter: 2022Q2

REPORT INFORMATION
  Report Type: Report from Study
  Country: GB (occurrence: GB)
  Receive Date: 20220407
  Receipt Date: 20220528
  Transmission Date: 20220720
  Serious: Yes (Other)
  Sender: FDA-Public Use
  Company Number: GB-NOVARTISPH-NVSC2021GB256265

PATIENT
  Age: 47 Year
  Sex: Female

DRUGS (2)
  1. KISQALI [Suspect]
     Active Substance: RIBOCICLIB
     Indication: Breast cancer
     Dosage: 200 MG, TID
     Route: 048
     Dates: start: 20210420
  2. KISQALI [Suspect]
     Active Substance: RIBOCICLIB
     Dosage: 200 MG, TID
     Route: 048
     Dates: start: 20210520

REACTIONS (9)
  - Glaucoma [Unknown]
  - Vision blurred [Unknown]
  - Skin fissures [Not Recovered/Not Resolved]
  - Depressed mood [Unknown]
  - Poor quality sleep [Unknown]
  - Malaise [Unknown]
  - Lacrimation increased [Not Recovered/Not Resolved]
  - Dry skin [Not Recovered/Not Resolved]
  - Alopecia [Unknown]

NARRATIVE: CASE EVENT DATE: 20210808
